FAERS Safety Report 8531292-5 (Version None)
Quarter: 2012Q3

REPORT INFORMATION
  Report Type: 
  Country: None (occurrence: None)
  Receive Date: 20120711
  Receipt Date: 20120625
  Transmission Date: 20120928
  Serious: Yes (Other)
  Sender: FDA-Public Use
  Company Number: 2012MA007855

PATIENT
  Age: 55 Year
  Sex: Female

DRUGS (1)
  1. AMANTADINE HCL [Suspect]
     Indication: PARKINSON'S DISEASE
     Dosage: 100 MG;BID;PO
     Route: 048

REACTIONS (2)
  - POLYCYTHAEMIA [None]
  - LIVEDO RETICULARIS [None]
